FAERS Safety Report 8492946-2 (Version None)
Quarter: 2012Q3

REPORT INFORMATION
  Report Type: 
  Country: None (occurrence: None)
  Receive Date: 20120706
  Receipt Date: 20120606
  Transmission Date: 20120928
  Serious: Yes (Other)
  Sender: FDA-Public Use
  Company Number: BR-GLAXOSMITHKLINE-B0807036A

PATIENT
  Sex: Male
  Weight: 10.3 kg

DRUGS (4)
  1. CEFUROXIME [Suspect]
     Indication: SINUSITIS
     Dosage: 175MG TWICE PER DAY
     Route: 048
     Dates: start: 20120601, end: 20120615
  2. BEROTEC [Suspect]
     Indication: BRONCHOSPASM
     Dosage: 3ML FOUR TIMES PER DAY
     Dates: start: 20120601
  3. PRELONE [Suspect]
     Dosage: 3.5ML PER DAY
     Dates: start: 20120601, end: 20120606
  4. ATROVENT [Suspect]
     Indication: BRONCHOSPASM
     Dosage: 6ML FOUR TIMES PER DAY
     Dates: start: 20120601

REACTIONS (3)
  - GASTROENTERITIS VIRAL [None]
  - FATIGUE [None]
  - VOMITING [None]
